FAERS Safety Report 7770834-4 (Version None)
Quarter: 2011Q3

REPORT INFORMATION
  Report Type: 
  Country: None (occurrence: None)
  Receive Date: 20110922
  Receipt Date: 20110714
  Transmission Date: 20111222
  Serious: No
  Sender: FDA-Public Use
  Company Number: US-ASTRAZENECA-2009UW21832

PATIENT
  Age: 43 Year
  Sex: Female
  Weight: 99.8 kg

DRUGS (1)
  1. SEROQUEL [Suspect]
     Dosage: 200-300 MILLIGRAMS
     Route: 048
     Dates: start: 20070101

REACTIONS (7)
  - VOMITING [None]
  - HEADACHE [None]
  - MYALGIA [None]
  - HYPERHIDROSIS [None]
  - DRUG DOSE OMISSION [None]
  - INCORRECT DOSE ADMINISTERED [None]
  - EMOTIONAL DISORDER [None]
